FAERS Safety Report 16803807 (Version 1)
Quarter: 2019Q3

REPORT INFORMATION
  Report Type: Spontaneous
  Country: GB (occurrence: GB)
  Receive Date: 20190913
  Receipt Date: 20190913
  Transmission Date: 20191005
  Serious: Yes (Other)
  Sender: FDA-Public Use
  Company Number: GB-AUROBINDO-AUR-APL-2019-059476

PATIENT

DRUGS (4)
  1. IBUPROFEN. [Concomitant]
     Active Substance: IBUPROFEN
     Indication: PAIN
     Dosage: 3 DOSAGE FORM, DAILY,APPLY TO THE PAINFUL PARTS
     Route: 065
     Dates: start: 20190530, end: 20190712
  2. OTOMIZE EAR SPRAY [Concomitant]
     Indication: PRODUCT USED FOR UNKNOWN INDICATION
     Dosage: 3 DOSAGE FORM, DAILY
     Route: 001
     Dates: start: 20190712, end: 20190713
  3. SOFRADEX [Concomitant]
     Active Substance: DEXAMETHASONE\FRAMYCETIN SULFATE\GRAMICIDIN
     Indication: PRODUCT USED FOR UNKNOWN INDICATION
     Dosage: UNK,TWO OR THREE DROPS INSTILLED INTO THE AFFECTED
     Route: 065
     Dates: start: 20190521, end: 20190703
  4. NAPROXEN TABLET [Suspect]
     Active Substance: NAPROXEN
     Indication: PRODUCT USED FOR UNKNOWN INDICATION
     Dosage: 250 MILLIGRAM
     Route: 065
     Dates: start: 20190723

REACTIONS (2)
  - Malaise [Unknown]
  - Dizziness [Recovered/Resolved]

NARRATIVE: CASE EVENT DATE: 20190723
